FAERS Safety Report 17162476 (Version 1)
Quarter: 2019Q4

REPORT INFORMATION
  Report Type: Spontaneous
  Country: US (occurrence: US)
  Receive Date: 20191216
  Receipt Date: 20191216
  Transmission Date: 20200122
  Serious: Yes (Other)
  Sender: FDA-Public Use
  Company Number: None

PATIENT
  Age: 54 Year
  Sex: Male
  Weight: 119 kg

DRUGS (10)
  1. FUROSEMIDE 40 MG PO DAILY [Concomitant]
  2. CALCITRIOL 0.25 MCG PO DAILY [Concomitant]
  3. PIPERACILLIN- TAZOBACTAM 4.5 GM Q8H EXTENDED INFUSION [Concomitant]
  4. WARFARIN [Suspect]
     Active Substance: WARFARIN
     Indication: PULMONARY EMBOLISM
     Route: 048
     Dates: end: 20191209
  5. GABAPENTIN 300 MG PO Q12H [Concomitant]
  6. BUDESONIDE 180 MCG INHALER BID [Concomitant]
  7. WARFARIN [Suspect]
     Active Substance: WARFARIN
     Indication: ANTIPHOSPHOLIPID SYNDROME
     Route: 048
     Dates: end: 20191209
  8. METOPROLOL TARTRATE 50 MG PO Q12H [Concomitant]
  9. MYCOPHENOLATE 1,500 MG PO X1 [Concomitant]
  10. VANCOMYCIN 2GMX1, THEN 1.5 GM IV Q24H [Concomitant]

REACTIONS (2)
  - Skin necrosis [None]
  - Skin lesion [None]

NARRATIVE: CASE EVENT DATE: 20191002
